FAERS Safety Report 6367636-2 (Version None)
Quarter: 2009Q3

REPORT INFORMATION
  Report Type: 
  Country: None (occurrence: None)
  Receive Date: 20090921
  Receipt Date: 20090916
  Transmission Date: 20100115
  Serious: Yes (Other)
  Sender: FDA-Public Use
  Company Number: CH-WYE-G04448409

PATIENT

DRUGS (1)
  1. RAPAMUNE [Suspect]
     Dosage: UNKNOWN DOSAGE AND THERAPY DATES

REACTIONS (2)
  - GASTROINTESTINAL DISORDER [None]
  - INTESTINAL OBSTRUCTION [None]
